FAERS Safety Report 25173200 (Version 4)
Quarter: 2025Q2

REPORT INFORMATION
  Report Type: Report from Study
  Country: BR (occurrence: BR)
  Receive Date: 20250408
  Receipt Date: 20250417
  Transmission Date: 20250717
  Serious: Yes (Other)
  Sender: NOVARTIS
  Company Number: BR-002147023-NVSC2025BR057004

PATIENT
  Age: 53 Year
  Sex: Female

DRUGS (3)
  1. KISQALI [Suspect]
     Active Substance: RIBOCICLIB SUCCINATE
     Indication: Product used for unknown indication
     Dosage: 3 DOSAGE FORM, QD
     Route: 065
  2. KISQALI [Suspect]
     Active Substance: RIBOCICLIB SUCCINATE
     Route: 065
     Dates: start: 202412
  3. ANASTROZOLE [Suspect]
     Active Substance: ANASTROZOLE
     Indication: Product used for unknown indication
     Route: 065

REACTIONS (29)
  - Hypersensitivity [Recovering/Resolving]
  - Rash [Recovering/Resolving]
  - Skin depigmentation [Recovering/Resolving]
  - Erythema [Recovering/Resolving]
  - Pruritus [Recovering/Resolving]
  - Dry skin [Recovering/Resolving]
  - Skin exfoliation [Recovering/Resolving]
  - Blister [Recovering/Resolving]
  - Skin discolouration [Recovering/Resolving]
  - Drug intolerance [Unknown]
  - Peripheral swelling [Recovering/Resolving]
  - Swelling [Recovering/Resolving]
  - Body temperature increased [Recovering/Resolving]
  - Nervousness [Unknown]
  - Arthralgia [Unknown]
  - Joint swelling [Unknown]
  - Skin burning sensation [Unknown]
  - Scab [Unknown]
  - Skin lesion [Unknown]
  - Skin striae [Unknown]
  - Malaise [Unknown]
  - Nausea [Unknown]
  - Sluggishness [Unknown]
  - Laboratory test abnormal [Unknown]
  - Anaemia [Unknown]
  - Inflammation [Unknown]
  - Serum ferritin increased [Unknown]
  - Blood cholesterol increased [Unknown]
  - Decreased immune responsiveness [Unknown]

NARRATIVE: CASE EVENT DATE: 20250218
